FAERS Safety Report 7532930-6 (Version None)
Quarter: 2011Q2

REPORT INFORMATION
  Report Type: 
  Country: None (occurrence: None)
  Receive Date: 20110608
  Receipt Date: 20110601
  Transmission Date: 20111010
  Serious: Yes (Other)
  Sender: FDA-Public Use
  Company Number: IT-ROXANE LABORATORIES, INC.-2011-RO-00759RO

PATIENT
  Age: 80 Year
  Sex: Female

DRUGS (1)
  1. EXEMESTANE [Suspect]
     Indication: ANTIOESTROGEN THERAPY
     Dosage: 25 MG

REACTIONS (1)
  - CUTANEOUS VASCULITIS [None]
